FAERS Safety Report 7988962-7 (Version None)
Quarter: 2011Q4

REPORT INFORMATION
  Report Type: 
  Country: None (occurrence: None)
  Receive Date: 20111219
  Receipt Date: 20111207
  Transmission Date: 20120403
  Serious: Yes (Hospitalization)
  Sender: FDA-Public Use
  Company Number: US-BAYER-2010-008899

PATIENT
  Age: 31 Year
  Sex: Female
  Weight: 165.9 kg

DRUGS (11)
  1. ANTIMIGRAINE PREPARATIONS [Concomitant]
     Indication: MIGRAINE
     Dosage: UNK
     Dates: start: 19940101
  2. LOVENOX [Concomitant]
  3. ACETAMINOPHEN [Concomitant]
     Dosage: 500 MG, TID, AS NEEDED
  4. WARFARIN SODIUM [Concomitant]
  5. YAZ [Suspect]
     Indication: PREMENSTRUAL SYNDROME
     Dosage: UNK
     Dates: start: 20100310, end: 20100317
  6. LORATADINE [Concomitant]
     Indication: MULTIPLE ALLERGIES
     Dosage: UNK
     Dates: start: 20100101
  7. NAPROXEN [Concomitant]
     Indication: HEADACHE
     Dosage: 500 MG, BID
  8. SUMATRIPTAN [Concomitant]
     Dosage: 25 MG, QD
  9. MEDROXYPROGESTERONE [Concomitant]
     Dosage: UNK
  10. NSAID'S [Concomitant]
     Dosage: UNK UNK, PRN
  11. DIPHENHYDRAMINE HCL [Concomitant]
     Indication: HEADACHE
     Dosage: 25 MG, QD

REACTIONS (3)
  - DEEP VEIN THROMBOSIS [None]
  - INJURY [None]
  - PAIN [None]
